FAERS Safety Report 17579124 (Version 2)
Quarter: 2020Q3

REPORT INFORMATION
  Report Type: Report from Study
  Country: None (occurrence: CA)
  Receive Date: 20200325
  Receipt Date: 20200704
  Transmission Date: 20201102
  Serious: Yes (Hospitalization, Other)
  Sender: FDA-Public Use
  Company Number: CA-ABBVIE-20K-028-3335405-00

PATIENT
  Age: 36 Year
  Sex: Female

DRUGS (1)
  1. HUMIRA [Suspect]
     Active Substance: ADALIMUMAB
     Indication: CROHN^S DISEASE
     Route: 058
     Dates: start: 20140411

REACTIONS (18)
  - Maternal exposure during pregnancy [Unknown]
  - Platelet count increased [Unknown]
  - Weight decreased [Not Recovered/Not Resolved]
  - Red cell distribution width increased [Unknown]
  - Anastomotic complication [Not Recovered/Not Resolved]
  - Steroid dependence [Not Recovered/Not Resolved]
  - Postpartum haemorrhage [Not Recovered/Not Resolved]
  - Fatigue [Not Recovered/Not Resolved]
  - Drug intolerance [Unknown]
  - Live birth [Unknown]
  - Constipation [Not Recovered/Not Resolved]
  - Monocyte count decreased [Unknown]
  - Haemoglobin decreased [Not Recovered/Not Resolved]
  - Iron deficiency [Not Recovered/Not Resolved]
  - Small intestinal obstruction [Recovered/Resolved]
  - Serum ferritin decreased [Unknown]
  - Small intestinal obstruction [Recovered/Resolved]
  - Diarrhoea [Not Recovered/Not Resolved]

NARRATIVE: CASE EVENT DATE: 201910
